FAERS Safety Report 16174286 (Version 7)
Quarter: 2023Q1

REPORT INFORMATION
  Report Type: Report from Study
  Country: CZ (occurrence: CZ)
  Receive Date: 20190409
  Receipt Date: 20230208
  Transmission Date: 20230418
  Serious: Yes (Other)
  Sender: FDA-Public Use
  Company Number: PHHY2018CZ036968

PATIENT
  Age: 7 Year
  Sex: Female

DRUGS (2)
  1. DABRAFENIB [Suspect]
     Active Substance: DABRAFENIB
     Indication: Astrocytoma, low grade
     Dosage: UNK
     Route: 048
     Dates: start: 20180131
  2. TRAMETINIB [Suspect]
     Active Substance: TRAMETINIB
     Indication: Astrocytoma, low grade
     Dosage: UNK
     Route: 048
     Dates: start: 20180131

REACTIONS (19)
  - Optic atrophy [Unknown]
  - Conjunctivitis allergic [Recovered/Resolved]
  - Rhinitis allergic [Recovered/Resolved]
  - Seasonal allergy [Recovered/Resolved]
  - Sinus arrhythmia [Recovered/Resolved]
  - Otitis media acute [Recovered/Resolved]
  - Cheilitis [Recovered/Resolved]
  - Dermatitis [Unknown]
  - Aspartate aminotransferase increased [Unknown]
  - Anaemia [Unknown]
  - Diarrhoea [Recovered/Resolved]
  - Paronychia [Recovered/Resolved]
  - Decreased appetite [Unknown]
  - Blood thyroid stimulating hormone increased [Unknown]
  - Palpitations [Unknown]
  - Agitation [Unknown]
  - Hypermetropia [Unknown]
  - Astigmatism [Unknown]
  - Viral infection [Recovered/Resolved]

NARRATIVE: CASE EVENT DATE: 20180202
